FAERS Safety Report 6526481-5 (Version None)
Quarter: 2009Q4

REPORT INFORMATION
  Report Type: 
  Country: None (occurrence: None)
  Receive Date: 20091229
  Receipt Date: 20091215
  Transmission Date: 20100525
  Serious: Yes (Other)
  Sender: FDA-Public Use
  Company Number: 8054246

PATIENT
  Sex: Female
  Weight: 97.5 kg

DRUGS (4)
  1. KEPPRA [Suspect]
     Indication: EPILEPSY
     Dosage: 1000 MG BID ORAL
     Route: 048
     Dates: start: 20090608
  2. PROAIR HFA [Concomitant]
  3. IBUPROFEN [Concomitant]
  4. ZOLOFT [Concomitant]

REACTIONS (3)
  - DRUG EXPOSURE DURING PREGNANCY [None]
  - PREGNANCY [None]
  - RUPTURED ECTOPIC PREGNANCY [None]
